FAERS Safety Report 6916284-1 (Version None)
Quarter: 2010Q3

REPORT INFORMATION
  Report Type: 
  Country: None (occurrence: None)
  Receive Date: 20100810
  Receipt Date: 20100729
  Transmission Date: 20110219
  Serious: Yes (Hospitalization, Other)
  Sender: FDA-Public Use
  Company Number: US-PFIZER INC-2010095887

PATIENT
  Sex: Female

DRUGS (1)
  1. GEODON [Suspect]
     Dosage: 60 MG, 3X/DAY

REACTIONS (3)
  - DEPRESSION [None]
  - EATING DISORDER [None]
  - SUICIDE ATTEMPT [None]
